FAERS Safety Report 16340893 (Version 1)
Quarter: 2019Q2

REPORT INFORMATION
  Report Type: Spontaneous
  Country: IT (occurrence: IT)
  Receive Date: 20190522
  Receipt Date: 20190522
  Transmission Date: 20190711
  Serious: Yes (Other)
  Sender: FDA-Public Use
  Company Number: IT-AUROBINDO-AUR-APL-2019-028266

PATIENT

DRUGS (3)
  1. CLARITHROMYCIN. [Suspect]
     Active Substance: CLARITHROMYCIN
     Indication: ANTIBIOTIC THERAPY
     Dosage: UNK
     Route: 048
  2. TINIDAZOLE. [Suspect]
     Active Substance: TINIDAZOLE
     Indication: ANTIBIOTIC THERAPY
     Dosage: UNK
     Route: 048
  3. CIPROFLOXACIN FILM-COATED TABLETS [Suspect]
     Active Substance: CIPROFLOXACIN
     Indication: ANTIBIOTIC THERAPY
     Dosage: UNK
     Route: 065

REACTIONS (3)
  - Swollen tongue [Recovered/Resolved]
  - Angioedema [Recovered/Resolved]
  - Urticaria [Recovered/Resolved]

NARRATIVE: CASE EVENT DATE: 20160901
